FAERS Safety Report 4516296-1 (Version None)
Quarter: 2004Q4

REPORT INFORMATION
  Report Type: 
  Country: None (occurrence: None)
  Receive Date: 20041027
  Receipt Date: 20040617
  Transmission Date: 20050328
  Serious: No
  Sender: FDA-Public Use
  Company Number: US080688

PATIENT
  Age: 62 Year
  Sex: Female
  Weight: 66 kg

DRUGS (6)
  1. SENSIPAR [Suspect]
     Indication: HYPERPARATHYROIDISM SECONDARY
     Dosage: 30 MG, 1 IN 1 DAYS, PO
     Route: 048
     Dates: start: 20040504, end: 20040505
  2. SEVELAMER HCL [Concomitant]
  3. PARICALCITOL [Concomitant]
  4. ENALAPRIL MALEATE [Concomitant]
  5. CLONIDINE [Concomitant]
  6. EPOGEN [Concomitant]

REACTIONS (1)
  - RASH PRURITIC [None]
